FAERS Safety Report 9595147 (Version 1)
Quarter: 2013Q4

REPORT INFORMATION
  Report Type: Spontaneous
  Country: US (occurrence: US)
  Receive Date: 20131004
  Receipt Date: 20131004
  Transmission Date: 20140711
  Serious: Yes (Other)
  Sender: FDA-Public Use
  Company Number: US-TEVA-435581USA

PATIENT
  Sex: Male
  Weight: 113.5 kg

DRUGS (1)
  1. MODAFINIL [Suspect]
     Indication: NARCOLEPSY
     Route: 048

REACTIONS (5)
  - Loss of consciousness [Unknown]
  - Fatigue [Unknown]
  - Disturbance in attention [Unknown]
  - Drug ineffective [Unknown]
  - Somnolence [Unknown]
